FAERS Safety Report 5797954-8 (Version None)
Quarter: 2008Q3

REPORT INFORMATION
  Report Type: 
  Country: None (occurrence: None)
  Receive Date: 20080702
  Receipt Date: 20080701
  Transmission Date: 20090109
  Serious: Yes (Other)
  Sender: FDA-Public Use
  Company Number: US-AMGEN-QUU286046

PATIENT
  Sex: Female

DRUGS (4)
  1. ENBREL [Suspect]
     Indication: PSORIATIC ARTHROPATHY
     Route: 058
     Dates: start: 19991019
  2. ENBREL [Suspect]
     Indication: PSORIASIS
  3. CLOMID [Concomitant]
     Route: 065
     Dates: start: 20010101
  4. HEPARIN [Concomitant]
     Route: 058
     Dates: start: 20010101, end: 20010101

REACTIONS (6)
  - ABORTION MISSED [None]
  - ABORTION SPONTANEOUS [None]
  - DRUG EXPOSURE DURING PREGNANCY [None]
  - INTRA-UTERINE DEATH [None]
  - JOINT SWELLING [None]
  - VOMITING IN PREGNANCY [None]
